FAERS Safety Report 23716782 (Version 1)
Quarter: 2024Q2

REPORT INFORMATION
  Report Type: Spontaneous
  Country: IN (occurrence: IN)
  Receive Date: 20240408
  Receipt Date: 20240408
  Transmission Date: 20240716
  Serious: Yes (Other)
  Sender: FDA-Public Use
  Company Number: IN-002147023-NVSC2024IN067263

PATIENT
  Age: 60 Year
  Sex: Female

DRUGS (1)
  1. RIBOCICLIB [Suspect]
     Active Substance: RIBOCICLIB
     Indication: Product used for unknown indication
     Dosage: 600 MG, QD
     Route: 048
     Dates: start: 20230927

REACTIONS (9)
  - Dyspnoea [Unknown]
  - Pain [Unknown]
  - Pleural effusion [Unknown]
  - Nausea [Unknown]
  - Positron emission tomogram abnormal [Unknown]
  - Osteosclerosis [Unknown]
  - Breast mass [Unknown]
  - Ovarian cyst [Unknown]
  - Adnexa uteri mass [Unknown]

NARRATIVE: CASE EVENT DATE: 20231103
